FAERS Safety Report 9127122 (Version 1)
Quarter: 2013Q1

REPORT INFORMATION
  Report Type: Spontaneous
  Country: US (occurrence: US)
  Receive Date: 20130122
  Receipt Date: 20130122
  Transmission Date: 20140127
  Serious: Yes (Hospitalization)
  Sender: FDA-Public Use
  Company Number: US-CELGENEUS-163-21880-13011811

PATIENT
  Age: 69 Year
  Sex: Male

DRUGS (4)
  1. REVLIMID [Suspect]
     Indication: MYELODYSPLASTIC SYNDROME
     Dosage: 10 MILLIGRAM
     Route: 048
     Dates: start: 201006, end: 2010
  2. REVLIMID [Suspect]
     Dosage: 5-10MG
     Route: 048
     Dates: start: 201009, end: 2012
  3. REVLIMID [Suspect]
     Dosage: 5 MILLIGRAM
     Route: 048
     Dates: start: 201204, end: 2012
  4. REVLIMID [Suspect]
     Dosage: 10 MILLIGRAM
     Route: 048
     Dates: start: 201205

REACTIONS (2)
  - Lung disorder [Recovered/Resolved with Sequelae]
  - Haemoglobin decreased [Recovered/Resolved with Sequelae]
